FAERS Safety Report 10363594 (Version 1)
Quarter: 2014Q3

REPORT INFORMATION
  Report Type: Spontaneous
  Country: US (occurrence: US)
  Receive Date: 20140805
  Receipt Date: 20140805
  Transmission Date: 20150326
  Serious: Yes (Hospitalization)
  Sender: FDA-Public Use
  Company Number: PHHY2014US095122

PATIENT
  Age: 69 Year
  Sex: Female

DRUGS (13)
  1. HYDROCHLOROTHIAZIDE. [Concomitant]
     Active Substance: HYDROCHLOROTHIAZIDE
  2. DACARBAZINE. [Concomitant]
     Active Substance: DACARBAZINE
     Indication: HODGKIN^S DISEASE STAGE I
  3. BLEOMYCIN [Concomitant]
     Active Substance: BLEOMYCIN SULFATE
     Indication: HODGKIN^S DISEASE STAGE I
  4. TRIMETHOPRIM. [Concomitant]
     Active Substance: TRIMETHOPRIM
     Indication: URINARY TRACT INFECTION
     Dosage: 100 MG, UNK
  5. PRAVASTATIN [Concomitant]
     Active Substance: PRAVASTATIN\PRAVASTATIN SODIUM
  6. DOXORUBICIN [Concomitant]
     Active Substance: DOXORUBICIN
     Indication: HODGKIN^S DISEASE STAGE I
  7. CYCLOBENZAPRINE [Concomitant]
     Active Substance: CYCLOBENZAPRINE
  8. VINBLASTINE [Concomitant]
     Active Substance: VINBLASTINE
     Indication: HODGKIN^S DISEASE STAGE I
  9. ACYCLOVIR. [Concomitant]
     Active Substance: ACYCLOVIR
  10. METOPROLOL [Concomitant]
     Active Substance: METOPROLOL
  11. NITROFURANTOIN. [Suspect]
     Active Substance: NITROFURANTOIN
     Indication: URINARY TRACT INFECTION
     Dosage: 100 MG, UNK
  12. METHOTREXATE [Concomitant]
     Active Substance: METHOTREXATE
     Indication: SERONEGATIVE ARTHRITIS
     Dosage: 17.5 MG, WEEKLY
  13. GABAPENTIN. [Concomitant]
     Active Substance: GABAPENTIN

REACTIONS (10)
  - Fatigue [Unknown]
  - Toxicity to various agents [Recovered/Resolved]
  - Rales [Unknown]
  - Dyspnoea [Unknown]
  - Granulomatous pneumonitis [Recovered/Resolved]
  - Breath sounds abnormal [Unknown]
  - Tachycardia [Unknown]
  - Hypoxia [Recovered/Resolved]
  - Monocyte count increased [Unknown]
  - Respiratory distress [Recovered/Resolved]
